FAERS Safety Report 17527715 (Version 1)
Quarter: 2020Q1

REPORT INFORMATION
  Report Type: Report from Study
  Country: MA (occurrence: MA)
  Receive Date: 20200311
  Receipt Date: 20200311
  Transmission Date: 20200409
  Serious: Yes (Hospitalization)
  Sender: FDA-Public Use
  Company Number: NVSC2020MA064049

PATIENT
  Age: 63 Year
  Sex: Female

DRUGS (1)
  1. AFINITOR [Suspect]
     Active Substance: EVEROLIMUS
     Indication: BREAST CANCER
     Dosage: 5 MG, BID
     Route: 048
     Dates: start: 20200127

REACTIONS (11)
  - Hyperglycaemia [Unknown]
  - Pain [Unknown]
  - Palpitations [Unknown]
  - Cough [Unknown]
  - Hypercholesterolaemia [Unknown]
  - Epistaxis [Unknown]
  - Dyspnoea [Unknown]
  - Oral disorder [Unknown]
  - Stomatitis [Unknown]
  - Fatigue [Unknown]
  - Hypertension [Unknown]

NARRATIVE: CASE EVENT DATE: 20200302
